FAERS Safety Report 4432218-6 (Version None)
Quarter: 2004Q3

REPORT INFORMATION
  Report Type: 
  Country: None (occurrence: None)
  Receive Date: 20040819
  Receipt Date: 20040809
  Transmission Date: 20050211
  Serious: Yes (Hospitalization, Other)
  Sender: FDA-Public Use
  Company Number: 200413450BCC

PATIENT
  Age: 31 Year
  Sex: Male
  Weight: 102.0593 kg

DRUGS (2)
  1. ALEVE [Suspect]
     Indication: MIGRAINE
     Dosage: 220 MG, PRN, ORAL
     Route: 048
  2. ADVIL [Suspect]
     Indication: MIGRAINE
     Dosage: PRN, ORAL
     Route: 048

REACTIONS (17)
  - ABDOMINAL PAIN [None]
  - ANAEMIA [None]
  - ANXIETY [None]
  - BLOOD PRESSURE DECREASED [None]
  - BLOOD PRESSURE INCREASED [None]
  - DIARRHOEA INFECTIOUS [None]
  - DIZZINESS [None]
  - DUODENAL ULCER [None]
  - DYSPNOEA [None]
  - FAECAL OCCULT BLOOD POSITIVE [None]
  - FAECES DISCOLOURED [None]
  - HEADACHE [None]
  - PALLOR [None]
  - RECTAL HAEMORRHAGE [None]
  - TACHYCARDIA [None]
  - TRANSFUSION REACTION [None]
  - WHITE BLOOD CELL COUNT INCREASED [None]
